FAERS Safety Report 4660514-6 (Version None)
Quarter: 2005Q2

REPORT INFORMATION
  Report Type: 
  Country: None (occurrence: None)
  Receive Date: 20050427
  Receipt Date: 20050214
  Transmission Date: 20051028
  Serious: No
  Sender: FDA-Public Use
  Company Number: 212442

PATIENT
  Age: 50 Year
  Sex: Female
  Weight: 123.4 kg

DRUGS (11)
  1. XOLAIR [Suspect]
     Indication: ASTHMA
     Dosage: 375 MG, Q2W, SUBCUTANEOUS
     Route: 058
     Dates: start: 20050106
  2. ALLEGRA [Concomitant]
  3. MAXZIDE [Concomitant]
  4. MICRO-K (POTASSIUM CHLORIDE) [Concomitant]
  5. METFORMIN HCL [Concomitant]
  6. GLYBURIDE [Concomitant]
  7. CLONIDINE [Concomitant]
  8. PROTONIX [Concomitant]
  9. SINGULAIR [Concomitant]
  10. ZORPRIN (ASPIRIN) [Concomitant]
  11. EPIPEN (EPINEPHRINE) [Concomitant]

REACTIONS (1)
  - COUGH [None]
